FAERS Safety Report 21302366 (Version 2)
Quarter: 2022Q3

REPORT INFORMATION
  Report Type: Report from Study
  Country: DE (occurrence: DE)
  Receive Date: 20220907
  Receipt Date: 20220928
  Transmission Date: 20221027
  Serious: Yes (Hospitalization, Other)
  Sender: FDA-Public Use
  Company Number: DE-ABBVIE-22K-062-4529738-00

PATIENT
  Age: 30 Year
  Sex: Female

DRUGS (2)
  1. SKYRIZI [Suspect]
     Active Substance: RISANKIZUMAB-RZAA
     Indication: Exposure via body fluid
     Route: 050
     Dates: start: 20190809, end: 20190906
  2. SKYRIZI [Suspect]
     Active Substance: RISANKIZUMAB-RZAA
     Route: 050
     Dates: start: 20190906

REACTIONS (3)
  - Abortion spontaneous [Unknown]
  - Paternal exposure during pregnancy [Unknown]
  - Maternal exposure during pregnancy [Unknown]
